FAERS Safety Report 7806720-0 (Version None)
Quarter: 2011Q4

REPORT INFORMATION
  Report Type: 
  Country: None (occurrence: None)
  Receive Date: 20111011
  Receipt Date: 20110930
  Transmission Date: 20120403
  Serious: Yes (Other)
  Sender: FDA-Public Use
  Company Number: PHEH2011US05655

PATIENT
  Sex: Male

DRUGS (1)
  1. AREDIA [Suspect]
     Dosage: 30 MG, UNK
     Route: 042

REACTIONS (4)
  - CARDIAC MURMUR [None]
  - CARDIAC FAILURE CONGESTIVE [None]
  - MITRAL VALVE DISEASE [None]
  - PYREXIA [None]
